FAERS Safety Report 23393555 (Version 2)
Quarter: 2024Q1

REPORT INFORMATION
  Report Type: Report from Study
  Country: US (occurrence: US)
  Receive Date: 20240111
  Receipt Date: 20240301
  Transmission Date: 20240410
  Serious: Yes (Hospitalization, Other)
  Sender: FDA-Public Use
  Company Number: US-ABBVIE-5579906

PATIENT
  Sex: Female

DRUGS (3)
  1. VENCLEXTA [Suspect]
     Active Substance: VENETOCLAX
     Indication: Adult T-cell lymphoma/leukaemia
     Dosage: FORM STRENGTH: 50 MILLIGRAM
     Route: 048
     Dates: end: 202312
  2. VENCLEXTA [Suspect]
     Active Substance: VENETOCLAX
     Indication: Adult T-cell lymphoma/leukaemia
     Dosage: FORM STRENGTH: 50 MILLIGRAM
     Route: 048
  3. CYPROHEPTADINE [Suspect]
     Active Substance: CYPROHEPTADINE
     Indication: Pruritus
     Route: 065

REACTIONS (8)
  - Full blood count decreased [Not Recovered/Not Resolved]
  - Anaemia [Not Recovered/Not Resolved]
  - Pruritus [Unknown]
  - Asthenia [Unknown]
  - Fall [Unknown]
  - Insomnia [Unknown]
  - Somnolence [Unknown]
  - White blood cell count decreased [Unknown]
